FAERS Safety Report 8367794-4 (Version None)
Quarter: 2012Q2

REPORT INFORMATION
  Report Type: 
  Country: None (occurrence: None)
  Receive Date: 20120517
  Receipt Date: 20120514
  Transmission Date: 20120825
  Serious: Yes (Other)
  Sender: FDA-Public Use
  Company Number: US-PFIZER INC-2012066696

PATIENT
  Age: 68 Year
  Sex: Female
  Weight: 52.15 kg

DRUGS (2)
  1. PREVACID [Concomitant]
     Indication: DYSPEPSIA
     Dosage: UNK
  2. LYRICA [Suspect]
     Indication: NEUROPATHY PERIPHERAL
     Dosage: 75 MG, 2X/DAY
     Dates: end: 20120301

REACTIONS (4)
  - INSOMNIA [None]
  - NEUROPATHY PERIPHERAL [None]
  - FALL [None]
  - HIP FRACTURE [None]
